FAERS Safety Report 4477312-9 (Version None)
Quarter: 2004Q4

REPORT INFORMATION
  Report Type: 
  Country: None (occurrence: None)
  Receive Date: 20041014
  Receipt Date: 20041002
  Transmission Date: 20050328
  Serious: Yes (Hospitalization)
  Sender: FDA-Public Use
  Company Number: US-JNJFOC-20041001591

PATIENT
  Age: 3 Year
  Sex: Male

DRUGS (2)
  1. TYLENOL [Suspect]
     Indication: DRUG USE FOR UNKNOWN INDICATION
     Dates: start: 19900101
  2. COUGH MEDICATION (COUGH AND COLD PREPARATIONS) [Concomitant]

REACTIONS (2)
  - SKIN DISCOLOURATION [None]
  - URTICARIA [None]
